FAERS Safety Report 4952241-2 (Version None)
Quarter: 2006Q1

REPORT INFORMATION
  Report Type: 
  Country: None (occurrence: None)
  Receive Date: 20060317
  Receipt Date: 20060308
  Transmission Date: 20060701
  Serious: Yes (Hospitalization)
  Sender: FDA-Public Use
  Company Number: 2006018648

PATIENT
  Age: 39 Year
  Sex: Male
  Weight: 70 kg

DRUGS (3)
  1. DEPO-MEDROL [Suspect]
     Indication: TENDON DISORDER
     Dosage: INTRAMUSCULAR
     Route: 030
     Dates: start: 20041214, end: 20050302
  2. LIGNOCAINE (LIGNOCAINE) [Suspect]
     Indication: ILL-DEFINED DISORDER
  3. MARIJUANA (CANNABIS) [Concomitant]

REACTIONS (7)
  - ABNORMAL BEHAVIOUR [None]
  - AGGRESSION [None]
  - AGITATION [None]
  - FRUSTRATION [None]
  - MENTAL STATUS CHANGES [None]
  - PSYCHOMOTOR HYPERACTIVITY [None]
  - PSYCHOTIC DISORDER [None]
